FAERS Safety Report 21573078 (Version 7)
Quarter: 2024Q3

REPORT INFORMATION
  Report Type: Spontaneous
  Country: IT (occurrence: IT)
  Receive Date: 20221109
  Receipt Date: 20240909
  Transmission Date: 20241016
  Serious: Yes (Hospitalization, Other)
  Sender: PFIZER
  Company Number: IT-ROCHE-3164874

PATIENT
  Age: 57 Year
  Sex: Female
  Weight: 68 kg

DRUGS (35)
  1. RITUXIMAB [Suspect]
     Active Substance: RITUXIMAB
     Indication: Diffuse large B-cell lymphoma
     Dosage: 375 MG/M2, EVERY 3 WEEKS
     Route: 042
     Dates: start: 20220718, end: 20220808
  2. DOXORUBICIN HYDROCHLORIDE [Suspect]
     Active Substance: DOXORUBICIN HYDROCHLORIDE
     Indication: Diffuse large B-cell lymphoma
     Dosage: 50 MG/M2, EVERY 3 WEEKS
     Route: 042
     Dates: start: 20220719, end: 20220719
  3. VINCRISTINE SULFATE [Suspect]
     Active Substance: VINCRISTINE SULFATE
     Indication: Diffuse large B-cell lymphoma
     Dosage: 1.4 MG/M2, EVERY 3 WEEKS
     Route: 042
     Dates: start: 20220719, end: 20220719
  4. EPCORITAMAB [Suspect]
     Active Substance: EPCORITAMAB
     Indication: Diffuse large B-cell lymphoma
     Dosage: PRIMING DOSE: 0.16 MG, SINGLE
     Route: 058
     Dates: start: 20220719, end: 20220719
  5. EPCORITAMAB [Suspect]
     Active Substance: EPCORITAMAB
     Dosage: INTERMEDIATE DOSE: 0.8 MG, SINGLE
     Route: 058
     Dates: start: 20220726, end: 20220726
  6. EPCORITAMAB [Suspect]
     Active Substance: EPCORITAMAB
     Dosage: FULL DOSE: 48 MG, WEEKLY
     Route: 058
     Dates: start: 20220803, end: 20220803
  7. EPCORITAMAB [Suspect]
     Active Substance: EPCORITAMAB
     Dosage: FULL DOSE: 48 MG, WEEKLY
     Route: 058
     Dates: start: 20220824
  8. CYCLOPHOSPHAMIDE [Suspect]
     Active Substance: CYCLOPHOSPHAMIDE
     Indication: Diffuse large B-cell lymphoma
     Dosage: 750 MG/M2, EVERY 3 WEEKS
     Route: 042
     Dates: start: 20220719, end: 20220719
  9. PREDNISONE [Suspect]
     Active Substance: PREDNISONE
     Indication: Diffuse large B-cell lymphoma
     Dosage: 25 MG, 1X/DAY
     Route: 048
     Dates: start: 20220704, end: 20220706
  10. PREDNISONE [Suspect]
     Active Substance: PREDNISONE
     Dosage: 50 MG, 1X/DAY (CRS PROPHYLAXIS)
     Route: 048
     Dates: start: 20220711, end: 20220718
  11. PREDNISONE [Suspect]
     Active Substance: PREDNISONE
     Dosage: 50 MG, 1X/DAY
     Route: 048
     Dates: start: 20220719, end: 20220723
  12. PREDNISONE [Suspect]
     Active Substance: PREDNISONE
     Dosage: 25 MG, 1X/DAY
     Route: 048
     Dates: start: 20220727, end: 20220729
  13. PREDNISONE [Suspect]
     Active Substance: PREDNISONE
     Dosage: 100 MG, 1X/DAY
     Route: 048
     Dates: start: 20220804, end: 20220806
  14. PREDNISONE [Suspect]
     Active Substance: PREDNISONE
     Dosage: 100 MG, 1X/DAY
     Route: 048
     Dates: start: 20220824, end: 20220828
  15. FAMOTIDINE [Concomitant]
     Active Substance: FAMOTIDINE
     Dosage: UNK
     Dates: start: 20220719, end: 20220719
  16. RABEPRAZOLE [Concomitant]
     Active Substance: RABEPRAZOLE
     Dosage: UNK
     Dates: start: 20220711, end: 20231101
  17. ENOXAPARIN SODIUM [Concomitant]
     Active Substance: ENOXAPARIN SODIUM
     Dosage: UNK
     Dates: start: 20220711, end: 20230228
  18. CHLORPHENIRAMINE MALEATE [Concomitant]
     Active Substance: CHLORPHENIRAMINE MALEATE
     Dosage: UNK
     Dates: start: 20220719, end: 20220824
  19. CHLORPHENIRAMINE MALEATE [Concomitant]
     Active Substance: CHLORPHENIRAMINE MALEATE
     Dosage: 10 MG
     Route: 042
     Dates: start: 20220726, end: 20220803
  20. METHYLPREDNISOLONE [Concomitant]
     Active Substance: METHYLPREDNISOLONE
     Dosage: UNK
     Route: 042
     Dates: start: 20220712, end: 20220712
  21. METHYLPREDNISOLONE [Concomitant]
     Active Substance: METHYLPREDNISOLONE
     Dosage: 80 MG
     Route: 042
     Dates: start: 20220726, end: 20220726
  22. METHYLPREDNISOLONE [Concomitant]
     Active Substance: METHYLPREDNISOLONE
     Dosage: 80 MG
     Route: 042
     Dates: start: 20220803, end: 20220803
  23. ACETAMINOPHEN [Concomitant]
     Active Substance: ACETAMINOPHEN
     Dosage: UNK
     Dates: start: 20220712, end: 20220720
  24. ACETAMINOPHEN [Concomitant]
     Active Substance: ACETAMINOPHEN
     Dosage: UNK
     Dates: start: 20220719, end: 20220824
  25. ACETAMINOPHEN [Concomitant]
     Active Substance: ACETAMINOPHEN
     Dosage: 1000 MG
     Route: 048
     Dates: start: 20220726, end: 20220803
  26. HYDROCORTISONE [Concomitant]
     Active Substance: HYDROCORTISONE\HYDROCORTISONE ACETATE
     Dosage: 100 MG
     Route: 042
     Dates: start: 20220718, end: 20220718
  27. ACYCLOVIR [Concomitant]
     Active Substance: ACYCLOVIR
     Dosage: UNK
     Dates: start: 20220718, end: 20231101
  28. METOCLOPRAMIDE [Concomitant]
     Active Substance: METOCLOPRAMIDE
     Dosage: UNK
     Dates: start: 20220720, end: 20220720
  29. SULFAMETHOXAZOLE\TRIMETHOPRIM [Concomitant]
     Active Substance: SULFAMETHOXAZOLE\TRIMETHOPRIM
     Dosage: UNK
     Dates: start: 20220718, end: 20231101
  30. BUTYLSCOPOLAMINE [Concomitant]
     Active Substance: BUTYLSCOPOLAMINE
     Dosage: UNK
     Dates: start: 20220720, end: 20220720
  31. CEFIXIME [Concomitant]
     Active Substance: CEFIXIME
     Dosage: UNK, 2X/DAY (ADMINISTRATION REPORTED TWICE FOR THE SAME DAY)
     Dates: start: 20220714, end: 20220726
  32. METHOTREXATE SODIUM [Concomitant]
     Active Substance: METHOTREXATE SODIUM
     Dosage: UNK
     Dates: start: 20220712, end: 20220712
  33. ALLOPURINOL [Concomitant]
     Active Substance: ALLOPURINOL
     Dosage: UNK
     Dates: start: 20220711
  34. METHOTREXATE [Concomitant]
     Active Substance: METHOTREXATE
     Dosage: UNK
  35. FOLIC ACID [Concomitant]
     Active Substance: FOLIC ACID
     Dosage: UNK
     Dates: start: 20220726, end: 20231101

REACTIONS (1)
  - Gastrointestinal perforation [Recovered/Resolved]

NARRATIVE: CASE EVENT DATE: 20220809
